FAERS Safety Report 15781995 (Version 3)
Quarter: 2020Q1

REPORT INFORMATION
  Report Type: Spontaneous
  Country: US (occurrence: US)
  Receive Date: 20190102
  Receipt Date: 20200331
  Transmission Date: 20200409
  Serious: No
  Sender: FDA-Public Use
  Company Number: US-PFIZER INC-2017285714

PATIENT
  Age: 13 Year
  Sex: Male
  Weight: 44 kg

DRUGS (10)
  1. GENOTROPIN [Suspect]
     Active Substance: SOMATROPIN
     Dosage: 2.4 MG, 1X/DAY
     Dates: start: 20170701
  2. CYPROHEPTADINE. [Concomitant]
     Active Substance: CYPROHEPTADINE
     Indication: DECREASED APPETITE
     Dosage: 2 MG, 1X/DAY
     Dates: start: 20170522
  3. GENOTROPIN [Suspect]
     Active Substance: SOMATROPIN
     Dosage: UNK
  4. CONCERTA [Concomitant]
     Active Substance: METHYLPHENIDATE HYDROCHLORIDE
     Indication: ATTENTION DEFICIT/HYPERACTIVITY DISORDER
     Dosage: 54 MG, 1X/DAY
  5. INTUNIV [Concomitant]
     Active Substance: GUANFACINE HYDROCHLORIDE
     Indication: OPPOSITIONAL DEFIANT DISORDER
     Dosage: 1 MG, UNK
  6. GENOTROPIN [Suspect]
     Active Substance: SOMATROPIN
     Indication: GROWTH HORMONE DEFICIENCY
     Dosage: 2.4 MG, 1X/DAY
     Dates: start: 20170620
  7. GENOTROPIN [Suspect]
     Active Substance: SOMATROPIN
     Indication: BODY HEIGHT BELOW NORMAL
     Dosage: 3.3 MG, 1X/DAY
     Dates: start: 2015
  8. FLOVENT [Concomitant]
     Active Substance: FLUTICASONE PROPIONATE
     Indication: ASTHMA
     Dosage: 2 DF, 2X/DAY
  9. GENOTROPIN [Suspect]
     Active Substance: SOMATROPIN
     Dosage: 2.8 MG, DAILY
  10. INTUNIV [Concomitant]
     Active Substance: GUANFACINE HYDROCHLORIDE
     Dosage: 4 MG, 1X/DAY

REACTIONS (4)
  - Insulin-like growth factor increased [Unknown]
  - Product dose omission [Unknown]
  - Incorrect dose administered [Unknown]
  - Device issue [Unknown]

NARRATIVE: CASE EVENT DATE: 20180109
